FAERS Safety Report 21841224 (Version 8)
Quarter: 2025Q4

REPORT INFORMATION
  Report Type: Spontaneous
  Country: JP (occurrence: JP)
  Receive Date: 20230110
  Receipt Date: 20251031
  Transmission Date: 20260117
  Serious: Yes (Hospitalization, Other)
  Sender: BRISTOL-MYERS SQUIBB COMPANY
  Company Number: JP-BRISTOL-MYERS SQUIBB COMPANY-2022-063811

PATIENT
  Age: 68 Year
  Sex: Female
  Weight: 45 kg

DRUGS (7)
  1. YERVOY [Suspect]
     Active Substance: IPILIMUMAB
     Indication: Non-small cell lung cancer
     Dosage: IN MARCH OF YEAR 20XX, IPILIMUMAB AND NIVOLUMAB STARTED.?ON AN UNSPECIFIED DATE, DIARRHEA AND ANOREXIA WERE OBSERVED FROM THE MIDDLE OF THE SECOND COURSE.
     Route: 041
  2. YERVOY [Suspect]
     Active Substance: IPILIMUMAB
     Dosage: ON AN UNSPECIFIED DATE, EXACERBATION DURING TREATMENT-FREE FOLLOW-UP. ALTHOUGH IPILIMUMAB AND NIVOLUMAB WERE RESUMED, AFTER ONE COURSE OF ADMINISTRATION, EXACERBATION OF DIARRHEA WAS OBSERVED, AND IT WAS DISCONTINUED AGAIN.
     Route: 041
  3. YERVOY [Suspect]
     Active Substance: IPILIMUMAB
     Dosage: ON AN UNSPECIFIED, THE TUMOR GREW AGAIN, AND TREATMENT WAS RESUMED. CURRENTLY, NIVOLUMAB WAS BEING SKIPED ON DAY 22, AND IPILIMUMAB AND NIVOLUMAB WERE BEING ADMINISTERED AT Q6W.
     Route: 041
  4. OPDIVO [Suspect]
     Active Substance: NIVOLUMAB
     Indication: Non-small cell lung cancer
     Dosage: IN MARCH OF YEAR 20XX, IPILIMUMAB AND NIVOLUMAB STARTED.?ON AN UNSPECIFIED DATE, DIARRHEA AND ANOREXIA WERE OBSERVED FROM THE MIDDLE OF THE SECOND COURSE. THE PLANNED TREATMENT WAS DISCONTINUED.
  5. OPDIVO [Suspect]
     Active Substance: NIVOLUMAB
     Dosage: ON AN UNSPECIFIED DATE, EXACERBATION DURING TREATMENT-FREE FOLLOW-UP. ALTHOUGH IPILIMUMAB AND NIVOLUMAB WERE RESUMED, AFTER ONE COURSE OF ADMINISTRATION, EXACERBATION OF DIARRHEA WAS OBSERVED, AND IT WAS DISCONTINUED AGAIN.
  6. OPDIVO [Suspect]
     Active Substance: NIVOLUMAB
     Dosage: ON AN UNSPECIFIED, THE TUMOR GREW AGAIN, AND TREATMENT WAS RESUMED. CURRENTLY, NIVOLUMAB WAS BEING SKIPED ON DAY 22, AND IPILIMUMAB AND NIVOLUMAB WERE BEING ADMINISTERED AT Q6W.
  7. VORICONAZOLE [Concomitant]
     Active Substance: VORICONAZOLE
     Indication: Bronchopulmonary aspergillosis
     Route: 048

REACTIONS (6)
  - Adrenal insufficiency [Unknown]
  - Diarrhoea [Unknown]
  - Decreased appetite [Unknown]
  - Fall [Unknown]
  - Humerus fracture [Unknown]
  - Non-small cell lung cancer [Unknown]
